FAERS Safety Report 5832820-0 (Version None)
Quarter: 2008Q3

REPORT INFORMATION
  Report Type: 
  Country: None (occurrence: None)
  Receive Date: 20080731
  Receipt Date: 20080717
  Transmission Date: 20090109
  Serious: Yes (Death)
  Sender: FDA-Public Use
  Company Number: 2008001540

PATIENT
  Age: 89 Year
  Sex: Male

DRUGS (6)
  1. ERLOTINIB (ERLOTINIB) (TABLET) (ERLOTINIB) [Suspect]
     Indication: LUNG ADENOCARCINOMA
     Dosage: (150 MG, QD), ORAL
     Route: 048
     Dates: start: 20080609, end: 20080616
  2. NAUZELIN (DOMPERIDONE) [Concomitant]
  3. MEDICON (DEXTROMETHORPHAN) [Concomitant]
  4. SELBEX (TEPRENONE) [Concomitant]
  5. OMEPRAZOLE [Concomitant]
  6. TS-1 [Concomitant]

REACTIONS (3)
  - INTERSTITIAL LUNG DISEASE [None]
  - PLEURAL EFFUSION [None]
  - PNEUMONIA [None]
